FAERS Safety Report 17349308 (Version 1)
Quarter: 2020Q1

REPORT INFORMATION
  Report Type: Spontaneous
  Country: FR (occurrence: FR)
  Receive Date: 20200130
  Receipt Date: 20200130
  Transmission Date: 20200409
  Serious: Yes (Hospitalization)
  Sender: FDA-Public Use
  Company Number: FR-SUN PHARMACEUTICAL INDUSTRIES LTD-2020RR-234941

PATIENT
  Age: 68 Year
  Sex: Female
  Weight: 61.5 kg

DRUGS (4)
  1. VALACICLOVIR [Suspect]
     Active Substance: VALACYCLOVIR HYDROCHLORIDE
     Indication: OPPORTUNISTIC INFECTION PROPHYLAXIS
     Dosage: NON RENSEIGNEE
     Route: 048
     Dates: start: 20190820, end: 20190928
  2. CHLORAMINOPHENE [Suspect]
     Active Substance: CHLORAMBUCIL
     Indication: EXTRANODAL MARGINAL ZONE B-CELL LYMPHOMA (MALT TYPE) RECURRENT
     Dosage: 2 DOSAGE FORMS, DAILY
     Route: 048
     Dates: start: 20190820, end: 20191008
  3. RITUXIMAB ((MAMMIFERE/HAMSTER/CELLULES CHO)) [Suspect]
     Active Substance: RITUXIMAB
     Indication: EXTRANODAL MARGINAL ZONE B-CELL LYMPHOMA (MALT TYPE) RECURRENT
     Dosage: 1 DOSAGE FORM, WEEKLY
     Route: 042
     Dates: start: 20190820, end: 20190910
  4. WELLVONE 750 MG/5 ML, SUSPENSION BUVABLE [Suspect]
     Active Substance: ATOVAQUONE
     Indication: OPPORTUNISTIC INFECTION PROPHYLAXIS
     Dosage: NON RENSEIGNEE ()
     Route: 048
     Dates: start: 20190820, end: 20190928

REACTIONS (2)
  - Hepatotoxicity [Recovered/Resolved]
  - Urticaria [Recovered/Resolved]

NARRATIVE: CASE EVENT DATE: 20190928
